FAERS Safety Report 14039033 (Version 3)
Quarter: 2017Q4

REPORT INFORMATION
  Report Type: Spontaneous
  Country: ES (occurrence: ES)
  Receive Date: 20171004
  Receipt Date: 20171205
  Transmission Date: 20180321
  Serious: Yes (Other)
  Sender: FDA-Public Use
  Company Number: ES-GILEAD-2017-0295951

PATIENT
  Age: 58 Year
  Sex: Female

DRUGS (4)
  1. DESVENLAFAXINA [Concomitant]
     Active Substance: DESVENLAFAXINE
  2. EPCLUSA [Suspect]
     Active Substance: SOFOSBUVIR\VELPATASVIR
     Indication: PRODUCT USED FOR UNKNOWN INDICATION
     Dosage: UNK
     Route: 065
     Dates: end: 20170922
  3. LORAZEPAM. [Concomitant]
     Active Substance: LORAZEPAM
  4. PARACETAMOL [Concomitant]
     Active Substance: ACETAMINOPHEN

REACTIONS (3)
  - Optic neuritis [Not Recovered/Not Resolved]
  - Cryoglobulinaemia [Unknown]
  - Hypernatraemia [Recovered/Resolved]

NARRATIVE: CASE EVENT DATE: 20170925
